FAERS Safety Report 7878265-3 (Version None)
Quarter: 2011Q4

REPORT INFORMATION
  Report Type: 
  Country: None (occurrence: None)
  Receive Date: 20111031
  Receipt Date: 20111012
  Transmission Date: 20120403
  Serious: Yes (Hospitalization)
  Sender: FDA-Public Use
  Company Number: 2011SP046152

PATIENT
  Age: 51 Year
  Sex: Female
  Weight: 49.4 kg

DRUGS (45)
  1. PEG-INTRON [Suspect]
     Indication: HEPATITIS C
     Dosage: 80 MCG;QW; 8O MCG;QW, UNK;UNK, UNK;UNK
     Dates: start: 20110928, end: 20110928
  2. PEG-INTRON [Suspect]
     Indication: HEPATITIS C
     Dosage: 80 MCG;QW; 8O MCG;QW, UNK;UNK, UNK;UNK
     Dates: start: 20110622, end: 20110922
  3. PEG-INTRON [Suspect]
     Indication: HEPATITIS C
     Dosage: 80 MCG;QW; 8O MCG;QW, UNK;UNK, UNK;UNK
     Dates: start: 20111006, end: 20111006
  4. PEG-INTRON [Suspect]
     Indication: HEPATITIS C
     Dosage: 80 MCG;QW; 8O MCG;QW, UNK;UNK, UNK;UNK
     Dates: start: 20110915, end: 20110915
  5. RIBAVIRIN [Suspect]
     Indication: HEPATITIS C
     Dosage: 300 MG;BID;UNK
     Dates: start: 20110915, end: 20110915
  6. SELBEX [Concomitant]
  7. PRIMPERAN TAB [Concomitant]
  8. ADOFEED [Concomitant]
  9. AMLODIPINE BESYLATE [Concomitant]
  10. ACETAMINOPHEN [Concomitant]
  11. ENSURE [Concomitant]
  12. PRIMPERAN TAB [Concomitant]
  13. MIYA-BM [Concomitant]
  14. SELBEX [Concomitant]
  15. MIYA BM [Concomitant]
  16. PRIMPERAN TAB [Concomitant]
  17. FAMOTIDINE [Concomitant]
  18. RIBAVIRIN [Suspect]
     Indication: HEPATITIS C
     Dosage: UNK;UNK
     Dates: start: 20110915, end: 20110915
  19. RIBAVIRIN [Suspect]
     Indication: HEPATITIS C
     Dosage: UNK;UNK
     Dates: start: 20110916, end: 20110916
  20. RIBAVIRIN [Suspect]
     Indication: HEPATITIS C
     Dosage: UNK;UNK
     Dates: start: 20110917, end: 20110917
  21. RIBAVIRIN [Suspect]
     Indication: HEPATITIS C
     Dosage: UNK;UNK
     Dates: start: 20110918, end: 20110918
  22. RIBAVIRIN [Suspect]
     Indication: HEPATITIS C
     Dosage: UNK;UNK
     Dates: start: 20110921, end: 20110927
  23. RIBAVIRIN [Suspect]
     Indication: HEPATITIS C
     Dosage: UNK;UNK
     Dates: start: 20110929, end: 20111006
  24. RIBAVIRIN [Suspect]
     Indication: HEPATITIS C
     Dosage: UNK;UNK
     Dates: start: 20111006, end: 20111012
  25. RIBAVIRIN [Suspect]
     Indication: HEPATITIS C
     Dosage: UNK;UNK
     Dates: start: 20110920, end: 20110920
  26. RIBAVIRIN [Suspect]
     Indication: HEPATITIS C
     Dosage: UNK;UNK
     Dates: start: 20110922, end: 20110928
  27. RIBAVIRIN [Suspect]
     Indication: HEPATITIS C
     Dosage: UNK;UNK
     Dates: start: 20110921, end: 20110921
  28. RIBAVIRIN [Suspect]
     Indication: HEPATITIS C
     Dosage: UNK;UNK
     Dates: start: 20110928, end: 20111005
  29. RIBAVIRIN [Suspect]
     Indication: HEPATITIS C
     Dosage: UNK;UNK
     Dates: start: 20110918, end: 20110918
  30. RIBAVIRIN [Suspect]
     Indication: HEPATITIS C
     Dosage: UNK;UNK
     Dates: start: 20110919, end: 20110919
  31. RIBAVIRIN [Suspect]
     Indication: HEPATITIS C
     Dosage: UNK;UNK
     Dates: start: 20110916, end: 20110916
  32. RIBAVIRIN [Suspect]
     Indication: HEPATITIS C
     Dosage: UNK;UNK
     Dates: start: 20110919, end: 20110919
  33. RIBAVIRIN [Suspect]
     Indication: HEPATITIS C
     Dosage: UNK;UNK
     Dates: start: 20110920, end: 20110920
  34. RIBAVIRIN [Suspect]
     Indication: HEPATITIS C
     Dosage: UNK;UNK
     Dates: start: 20110917, end: 20110917
  35. RIBAVIRIN [Suspect]
     Indication: HEPATITIS C
     Dosage: UNK;UNK
     Dates: start: 20111007, end: 20111013
  36. FAMOTIDINE [Concomitant]
  37. SELBEX [Concomitant]
  38. PEGINTERFERON ALFA-2B [Suspect]
     Indication: HEPATITIS C
     Dosage: 300 MG;BID;UNK, UNK;UNK, UNK;UNK, UNK;UNK
     Dates: start: 20110915, end: 20110928
  39. PEGINTERFERON ALFA-2B [Suspect]
     Indication: HEPATITIS C
     Dosage: 300 MG;BID;UNK, UNK;UNK, UNK;UNK, UNK;UNK
     Dates: start: 20110929, end: 20111013
  40. PEGINTERFERON ALFA-2B [Suspect]
     Indication: HEPATITIS C
     Dosage: 300 MG;BID;UNK, UNK;UNK, UNK;UNK, UNK;UNK
     Dates: start: 20110915, end: 20110927
  41. PEGINTERFERON ALFA-2B [Suspect]
     Indication: HEPATITIS C
     Dosage: 300 MG;BID;UNK, UNK;UNK, UNK;UNK, UNK;UNK
     Dates: start: 20110928, end: 20111012
  42. POTASSIUM CHLORIDE [Concomitant]
  43. PRIMPERAN TAB [Concomitant]
  44. PRIMPERAN TAB [Concomitant]
  45. FAMOTIDINE [Concomitant]

REACTIONS (5)
  - NAUSEA [None]
  - INAPPROPRIATE ANTIDIURETIC HORMONE SECRETION [None]
  - VOMITING [None]
  - DECREASED APPETITE [None]
  - DIARRHOEA [None]
